FAERS Safety Report 7412057-4 (Version None)
Quarter: 2011Q2

REPORT INFORMATION
  Report Type: 
  Country: None (occurrence: None)
  Receive Date: 20110405
  Receipt Date: 20110321
  Transmission Date: 20111010
  Serious: Yes (Hospitalization)
  Sender: FDA-Public Use
  Company Number: 2011059266

PATIENT
  Age: 59 Year
  Sex: Female

DRUGS (3)
  1. ENOXAPARIN SODIUM [Suspect]
     Indication: PULMONARY EMBOLISM
  2. DALTEPARIN SODIUM [Suspect]
     Indication: PULMONARY EMBOLISM
  3. BRIVANIB ALANINATE (BRIVANIB ALANINATE) [Suspect]
     Indication: ENDOMETRIAL CANCER
     Dosage: 800 MG, ORAL
     Route: 048
     Dates: start: 20101222, end: 20110213

REACTIONS (1)
  - CELLULITIS [None]
